FAERS Safety Report 8112803-0 (Version None)
Quarter: 2012Q1

REPORT INFORMATION
  Report Type: 
  Country: None (occurrence: None)
  Receive Date: 20120131
  Receipt Date: 20120117
  Transmission Date: 20120608
  Serious: Yes (Hospitalization, Disabling, Other)
  Sender: FDA-Public Use
  Company Number: 2010MA000814

PATIENT
  Sex: Female
  Weight: 81.6475 kg

DRUGS (41)
  1. METOCLOPRAMIDE [Suspect]
     Indication: IMPAIRED GASTRIC EMPTYING
     Dosage: 10 MG;;PO
     Route: 048
     Dates: start: 20040513, end: 20100101
  2. VASOTEC [Concomitant]
  3. LOPRESSOR [Concomitant]
  4. CLARITIN [Concomitant]
  5. COMPAZINE [Concomitant]
  6. PRILOSEC [Concomitant]
  7. GLUCOTROL [Concomitant]
  8. ZANTAC [Concomitant]
  9. BENADRYL [Concomitant]
  10. ROPINAROLE [Concomitant]
  11. HYDRALAZINE HCL [Concomitant]
  12. TIGAN [Concomitant]
  13. ACYCLOVIR [Concomitant]
  14. NORVASC [Concomitant]
  15. ACIPHEX [Concomitant]
  16. CARAFATE [Concomitant]
  17. COGENTIN [Concomitant]
  18. DONNATAL [Concomitant]
  19. KEFLEX [Concomitant]
  20. LOMOTIL [Concomitant]
  21. PLAVIX [Concomitant]
  22. REQUIP [Concomitant]
  23. DARVOCET-N 50 [Concomitant]
  24. CATAPRES [Concomitant]
  25. ZOCOR [Concomitant]
  26. ERYTHROMYCIN [Concomitant]
  27. RESTORIL [Concomitant]
  28. STEROIDS [Concomitant]
  29. GLUCOPHAGE [Concomitant]
  30. DITROPAN [Concomitant]
  31. PROCHLORPHENAZINE [Concomitant]
  32. SOMA [Concomitant]
  33. ACTOS [Concomitant]
  34. PHENERGAN [Concomitant]
  35. VICODIN [Concomitant]
  36. TIZANIDINE HCL [Concomitant]
  37. TEMAZEPAM [Concomitant]
  38. DEPAKOTE [Concomitant]
  39. LANTUS [Concomitant]
  40. CLONIDINE [Concomitant]
  41. ONDANSETRON HCL [Concomitant]

REACTIONS (32)
  - VOMITING [None]
  - TARDIVE DYSKINESIA [None]
  - CORONARY ARTERY DISEASE [None]
  - TINNITUS [None]
  - INJURY [None]
  - DIABETES MELLITUS [None]
  - PEPTIC ULCER [None]
  - DIZZINESS [None]
  - TREMOR [None]
  - ECONOMIC PROBLEM [None]
  - CHEST PAIN [None]
  - NAUSEA [None]
  - VIITH NERVE PARALYSIS [None]
  - CELLULITIS [None]
  - MULTIPLE INJURIES [None]
  - BACK PAIN [None]
  - INSOMNIA [None]
  - SYNCOPE [None]
  - RESTLESS LEGS SYNDROME [None]
  - MIGRAINE [None]
  - DIABETES MELLITUS INADEQUATE CONTROL [None]
  - HYPERTENSION [None]
  - GAIT DISTURBANCE [None]
  - OSTEOPENIA [None]
  - DYSKINESIA [None]
  - HEADACHE [None]
  - ARTHRALGIA [None]
  - EXTRAPYRAMIDAL DISORDER [None]
  - EMOTIONAL DISORDER [None]
  - IMPAIRED GASTRIC EMPTYING [None]
  - GASTROOESOPHAGEAL REFLUX DISEASE [None]
  - PRESYNCOPE [None]
